FAERS Safety Report 5624486-X (Version None)
Quarter: 2008Q1

REPORT INFORMATION
  Report Type: 
  Country: None (occurrence: None)
  Receive Date: 20080213
  Receipt Date: 20080204
  Transmission Date: 20080703
  Serious: Yes (Other)
  Sender: FDA-Public Use
  Company Number: JP-ASTRAZENECA-2008AP00841

PATIENT
  Age: 67 Year
  Sex: Male

DRUGS (2)
  1. CRESTOR [Suspect]
     Indication: HYPERCHOLESTEROLAEMIA
     Route: 048
     Dates: start: 20071018, end: 20080204
  2. NORVASC [Concomitant]
     Route: 048
     Dates: start: 20060901

REACTIONS (2)
  - HEPATIC FUNCTION ABNORMAL [None]
  - RED BLOOD CELL COUNT DECREASED [None]
